FAERS Safety Report 7085380-3 (Version None)
Quarter: 2010Q4

REPORT INFORMATION
  Report Type: 
  Country: None (occurrence: None)
  Receive Date: 20101105
  Receipt Date: 20101027
  Transmission Date: 20110411
  Serious: Yes (Disabling)
  Sender: FDA-Public Use
  Company Number: FR-ASTRAZENECA-2010SE51283

PATIENT
  Age: 56 Year
  Sex: Male

DRUGS (3)
  1. CRESTOR [Suspect]
     Indication: DYSLIPIDAEMIA
     Route: 048
     Dates: start: 20070101
  2. KARDEGIC [Concomitant]
  3. FONZYLANE [Concomitant]

REACTIONS (1)
  - MUSCLE RUPTURE [None]
